FAERS Safety Report 6501302-5 (Version None)
Quarter: 2009Q4

REPORT INFORMATION
  Report Type: 
  Country: None (occurrence: None)
  Receive Date: 20091127
  Receipt Date: 20090925
  Transmission Date: 20100525
  Serious: No
  Sender: FDA-Public Use
  Company Number: 001862

PATIENT
  Sex: Male

DRUGS (7)
  1. LACOSAMIDE [Suspect]
     Indication: CONVULSION
     Dosage: ORAL, 150 MG ORAL
     Route: 048
     Dates: start: 20090915, end: 20090922
  2. LACOSAMIDE [Suspect]
     Indication: CONVULSION
     Dosage: ORAL, 150 MG ORAL
     Route: 048
     Dates: start: 20090922, end: 20090924
  3. ZONISAMIDE [Concomitant]
  4. XALATAN [Concomitant]
  5. BENAZEPRIL HYDROCHLORIDE [Concomitant]
  6. LEVOTHYROXINE SODIUM [Concomitant]
  7. MICRO-K [Concomitant]

REACTIONS (1)
  - RASH [None]
